FAERS Safety Report 5231250-2 (Version None)
Quarter: 2007Q1

REPORT INFORMATION
  Report Type: 
  Country: None (occurrence: None)
  Receive Date: 20070202
  Receipt Date: 20070117
  Transmission Date: 20070707
  Serious: Yes (Hospitalization)
  Sender: FDA-Public Use
  Company Number: 2006S1010962

PATIENT
  Age: 75 Year
  Sex: Male
  Weight: 81.7 kg

DRUGS (6)
  1. PHENYTOIN SODIUM [Suspect]
     Indication: CONVULSION
     Dosage: 200 MG; TWICE A DAY; ORAL
     Route: 048
     Dates: start: 20060529, end: 20060726
  2. ARANESP [Suspect]
     Indication: ANAEMIA OF MALIGNANT DISEASE
     Dosage: 100 UG; EVERY OTHER WEEK, SUBCUTANEOUS
     Route: 058
     Dates: start: 20060627, end: 20060829
  3. GABAPENTIN [Suspect]
     Dosage: 300 MG; ORAL
     Route: 048
     Dates: start: 20060727, end: 20060801
  4. PREDNISONE (CON.) [Concomitant]
  5. LEVOTHYROXINE SODIUM (CON.) [Concomitant]
  6. GUAIFENESIN (CON.) [Concomitant]

REACTIONS (16)
  - BLOOD CALCIUM DECREASED [None]
  - BLOOD POTASSIUM INCREASED [None]
  - BLOOD UREA INCREASED [None]
  - CEREBRAL INFARCTION [None]
  - CEREBRAL ISCHAEMIA [None]
  - DRUG ERUPTION [None]
  - DRUG HYPERSENSITIVITY [None]
  - ENCEPHALITIS [None]
  - HYPONATRAEMIA [None]
  - INJECTION SITE ERYTHEMA [None]
  - LETHARGY [None]
  - LUNG INFILTRATION [None]
  - MUSCULOSKELETAL STIFFNESS [None]
  - PLATELET COUNT DECREASED [None]
  - PSEUDOMONAS INFECTION [None]
  - SKIN EXFOLIATION [None]
